FAERS Safety Report 20895728 (Version 2)
Quarter: 2022Q2

REPORT INFORMATION
  Report Type: Report from Study
  Country: AR (occurrence: AR)
  Receive Date: 20220531
  Receipt Date: 20220606
  Transmission Date: 20220721
  Serious: No
  Sender: FDA-Public Use
  Company Number: AR-NOVARTISPH-NVSC2020AR263827

PATIENT
  Age: 68 Year
  Sex: Female

DRUGS (1)
  1. COSENTYX [Suspect]
     Active Substance: SECUKINUMAB
     Indication: Psoriasis
     Dosage: 300 MG, QMO
     Route: 058
     Dates: start: 20180101

REACTIONS (13)
  - Bone pain [Unknown]
  - Insomnia [Unknown]
  - Palpitations [Unknown]
  - Blood triglycerides increased [Unknown]
  - Blood cholesterol increased [Unknown]
  - Psoriasis [Recovering/Resolving]
  - Pruritus [Unknown]
  - Skin fissures [Unknown]
  - Influenza [Unknown]
  - Acne [Unknown]
  - Condition aggravated [Not Recovered/Not Resolved]
  - Skin lesion [Unknown]
  - Skin exfoliation [Unknown]

NARRATIVE: CASE EVENT DATE: 20201201
